FAERS Safety Report 13289773 (Version 1)
Quarter: 2017Q1

REPORT INFORMATION
  Report Type: Spontaneous
  Country: US (occurrence: US)
  Receive Date: 20170302
  Receipt Date: 20170302
  Transmission Date: 20170428
  Serious: Yes (Other)
  Sender: FDA-Public Use
  Company Number: US-GALDERMA-US17001352

PATIENT
  Age: 16 Year
  Sex: Male

DRUGS (2)
  1. DIFFERIN GEL [Suspect]
     Active Substance: ADAPALENE
     Route: 061
  2. CETAPHIL GENTLE SKIN CLEANSER (DIFFERIN BALANCING CLEANSER) [Suspect]
     Active Substance: COSMETICS
     Route: 061

REACTIONS (5)
  - Pain [Unknown]
  - Wound [Unknown]
  - Swelling face [Unknown]
  - Wound secretion [Unknown]
  - Impaired work ability [Unknown]
